FAERS Safety Report 4493407-8 (Version None)
Quarter: 2004Q4

REPORT INFORMATION
  Report Type: 
  Country: None (occurrence: None)
  Receive Date: 20041102
  Receipt Date: 20041025
  Transmission Date: 20050328
  Serious: Yes (Life-Threatening, Hospitalization, Disabling)
  Sender: FDA-Public Use
  Company Number: A0522204A

PATIENT
  Age: 55 Year
  Sex: Female

DRUGS (2)
  1. LAMICTAL [Suspect]
  2. PAIN MEDICATION (PAIN MEDICATION) [Suspect]

REACTIONS (19)
  - BLINDNESS [None]
  - BLOOD GLUCOSE INCREASED [None]
  - BURNS SECOND DEGREE [None]
  - CORNEAL OPACITY [None]
  - COUGH [None]
  - CULTURE POSITIVE [None]
  - MOBILITY DECREASED [None]
  - NASAL CONGESTION [None]
  - PAIN [None]
  - PALLOR [None]
  - PHOTOPHOBIA [None]
  - PYREXIA [None]
  - RESPIRATORY FAILURE [None]
  - RHINORRHOEA [None]
  - SPUTUM RETENTION [None]
  - STAPHYLOCOCCAL INFECTION [None]
  - STEVENS-JOHNSON SYNDROME [None]
  - TOXIC EPIDERMAL NECROLYSIS [None]
  - VISION BLURRED [None]
